FAERS Safety Report 21231691 (Version 1)
Quarter: 2022Q3

REPORT INFORMATION
  Report Type: Spontaneous
  Country: NL (occurrence: NL)
  Receive Date: 20220819
  Receipt Date: 20220819
  Transmission Date: 20221027
  Serious: Yes (Other)
  Sender: FDA-Public Use
  Company Number: None

PATIENT
  Sex: Male
  Weight: 88.3 kg

DRUGS (10)
  1. PANTOPRAZOLE [Suspect]
     Active Substance: PANTOPRAZOLE
     Indication: Prophylaxis
     Dosage: 40 MILLIGRAM DAILY; 1 PER DAY 1 PIECE, FORM STRENGTH: 40MG, DURATION-11 MONTHS / BRAND NAME NOT SPEC
     Dates: start: 202106, end: 20220503
  2. ISOSORBIDE DINITRATE [Concomitant]
     Active Substance: ISOSORBIDE DINITRATE
     Indication: Product used for unknown indication
     Dosage: FORM STRENGTH 30 MG, THERAPY START DATE AND END DATE: ASKU
  3. NIFEDIPINE RP RETARD [Concomitant]
     Indication: Product used for unknown indication
     Dosage: FORM STRENGTH 30 MG, THERAPY START DATE AND END DATE: ASKU
  4. SODIUM BICARBONATE [Concomitant]
     Active Substance: SODIUM BICARBONATE
     Indication: Product used for unknown indication
     Dosage: FORM STRENGTH 500 MG, PHAGRON, THERAPY START DATE AND END DATE: ASKU
  5. DOXAZOSINE MYLAN RETARD [Concomitant]
     Indication: Product used for unknown indication
     Dosage: FORM STRENGTH 4 MG, THERAPY START DATE AND END DATE: ASKU
  6. FUSID [Concomitant]
     Indication: Product used for unknown indication
     Dosage: FORM STRENGTH 40 MG, NON-CURRENT DRUG, THERAPY START DATE AND END DATE: ASKU
  7. CLOPIDOGREL [Concomitant]
     Active Substance: CLOPIDOGREL BISULFATE
     Indication: Product used for unknown indication
     Dosage: FORM STRENGTH 75 MG, THERAPY START DATE AND END DATE: ASKU
  8. SELKEEN ZOC [Concomitant]
     Indication: Product used for unknown indication
     Dosage: FORM STRENGTH 50 MG, 50 TABLET MGA 47.5MG, THERAPY START DATE AND END DATE: ASKU
  9. ELIQUIS [Concomitant]
     Active Substance: APIXABAN
     Indication: Product used for unknown indication
     Dosage: FORM STRENGTH 5 MG, THERAPY START DATE AND END DATE: ASKU
  10. LIPITOR [Concomitant]
     Active Substance: ATORVASTATIN CALCIUM
     Indication: Product used for unknown indication
     Dosage: FORM STRENGTH 20 MG, THERAPY START DATE AND END DATE: ASKU

REACTIONS (1)
  - Dermatitis exfoliative generalised [Recovering/Resolving]
